FAERS Safety Report 4617558-X (Version None)
Quarter: 2005Q1

REPORT INFORMATION
  Report Type: 
  Country: None (occurrence: None)
  Receive Date: 20050324
  Receipt Date: 20050314
  Transmission Date: 20050727
  Serious: Yes (Hospitalization)
  Sender: FDA-Public Use
  Company Number: US-JNJFOC-20050303815

PATIENT
  Age: 80 Year
  Sex: Male

DRUGS (3)
  1. RISPERDAL [Suspect]
     Dosage: (AT BEDTIME)
     Route: 065
  2. RISPERDAL [Suspect]
     Indication: AGITATION
     Route: 065
  3. DONEPEZIL HCL [Concomitant]

REACTIONS (3)
  - BRADYCARDIA [None]
  - ELECTROCARDIOGRAM QT PROLONGED [None]
  - VENTRICULAR EXTRASYSTOLES [None]
